FAERS Safety Report 9861661 (Version 2)
Quarter: 2014Q1

REPORT INFORMATION
  Report Type: Spontaneous
  Country: CA (occurrence: CA)
  Receive Date: 20140203
  Receipt Date: 20140203
  Transmission Date: 20141002
  Serious: Yes (Other)
  Sender: FDA-Public Use
  Company Number: CA-BEH-2013038254

PATIENT
  Age: 62 Year
  Sex: Female
  Weight: 44 kg

DRUGS (4)
  1. PRIVIGEN [Suspect]
     Dosage: 13 ML/HR FOR 30 MIN.,25ML/HR FOR 30 MIN., 155 ML/HR FOR REMAINDER OF TRANSFUSION
     Route: 042
     Dates: start: 20130921, end: 20130921
  2. PRIVIGEN [Suspect]
     Indication: SECONDARY IMMUNODEFICIENCY
     Dosage: 13 ML/HR FOR 30 MIN.,25ML/HR FOR 30 MIN., 155 ML/HR FOR REMAINDER OF TRANSFUSION
     Route: 042
     Dates: start: 20130909
  3. PRIVIGEN [Suspect]
     Dosage: 13 ML/HR FOR 30 MIN.,25ML/HR FOR 30 MIN., 155 ML/HR FOR REMAINDER OF TRANSFUSION
     Dates: start: 20130916
  4. PRIVIGEN [Suspect]
     Dosage: 13 ML/HR FOR 30 MIN.,25ML/HR FOR 30 MIN., 155 ML/HR FOR REMAINDER OF TRANSFUSION
     Dates: start: 20130920

REACTIONS (8)
  - Bronchopulmonary aspergillosis [Unknown]
  - Sinus tachycardia [Recovering/Resolving]
  - Febrile nonhaemolytic transfusion reaction [Recovering/Resolving]
  - Pyrexia [Recovered/Resolved]
  - Chills [Recovering/Resolving]
  - Tremor [Recovering/Resolving]
  - Tachycardia [Recovering/Resolving]
  - Musculoskeletal chest pain [Recovered/Resolved]
